FAERS Safety Report 6197238-2 (Version None)
Quarter: 2009Q2

REPORT INFORMATION
  Report Type: 
  Country: None (occurrence: None)
  Receive Date: 20090521
  Receipt Date: 20070625
  Transmission Date: 20091009
  Serious: Yes (Hospitalization, Other)
  Sender: FDA-Public Use
  Company Number: US-ASTRAZENECA-2006UW24737

PATIENT
  Age: 256 Month
  Sex: Female
  Weight: 106.1 kg

DRUGS (16)
  1. SEROQUEL [Suspect]
     Indication: MAJOR DEPRESSION
     Route: 048
     Dates: start: 19990112
  2. SEROQUEL [Suspect]
     Dosage: 25 TO 50 MG
     Route: 048
     Dates: start: 20021004
  3. HALDOL [Concomitant]
     Dates: start: 19990101
  4. RISPERDAL [Concomitant]
     Dates: start: 19990101, end: 20010101
  5. ZYPREXA [Concomitant]
     Dates: start: 20010101, end: 20040101
  6. ATIVAN [Concomitant]
     Dosage: 2 TO 4 MG
     Route: 048
  7. ZOLOFT [Concomitant]
     Route: 048
     Dates: end: 19990210
  8. WELLBUTRIN [Concomitant]
     Route: 048
     Dates: end: 19990423
  9. SERZONE [Concomitant]
     Dosage: 50 TO 100 MG
     Route: 048
     Dates: start: 19990423
  10. AMBIEN [Concomitant]
     Route: 048
  11. REMERON [Concomitant]
     Route: 048
  12. INSULIN [Concomitant]
  13. PAXIL [Concomitant]
     Dosage: 10 TO 40 MG
     Route: 048
     Dates: start: 20010711, end: 20020911
  14. TRAZODONE HCL [Concomitant]
     Dosage: 20 TO 300 MG
     Route: 048
  15. EFFEXOR [Concomitant]
     Route: 048
     Dates: start: 19990917
  16. COGENTIN [Concomitant]
     Dosage: 0.5 TO 1 MG
     Route: 048

REACTIONS (28)
  - ACUTE SINUSITIS [None]
  - ACUTE STRESS DISORDER [None]
  - ALCOHOL ABUSE [None]
  - AMENORRHOEA [None]
  - CARPAL TUNNEL SYNDROME [None]
  - CONJUNCTIVITIS [None]
  - CYSTITIS [None]
  - DECREASED APPETITE [None]
  - DEPRESSION [None]
  - DRUG EXPOSURE DURING PREGNANCY [None]
  - HALLUCINATION, AUDITORY [None]
  - HEADACHE [None]
  - HOMICIDAL IDEATION [None]
  - INSOMNIA [None]
  - MUSCLE STRAIN [None]
  - PAIN IN EXTREMITY [None]
  - PSYCHOTIC DISORDER [None]
  - RESPIRATORY TRACT CONGESTION [None]
  - RHINITIS ALLERGIC [None]
  - SCHIZOAFFECTIVE DISORDER [None]
  - SEXUAL ABUSE [None]
  - SUICIDAL IDEATION [None]
  - TRICHOMONIASIS [None]
  - TYPE 2 DIABETES MELLITUS [None]
  - URINARY TRACT INFECTION [None]
  - VAGINAL HAEMORRHAGE [None]
  - VISION BLURRED [None]
  - WEIGHT DECREASED [None]
